FAERS Safety Report 7766762-0 (Version None)
Quarter: 2011Q3

REPORT INFORMATION
  Report Type: 
  Country: None (occurrence: None)
  Receive Date: 20110922
  Receipt Date: 20110318
  Transmission Date: 20111222
  Serious: No
  Sender: FDA-Public Use
  Company Number: US-ASTRAZENECA-2011SE12172

PATIENT
  Age: 78 Year
  Sex: Female
  Weight: 76.2 kg

DRUGS (3)
  1. SEROQUEL [Suspect]
     Indication: BIPOLAR DISORDER
     Route: 048
  2. SUPPLEMENTS [Concomitant]
  3. GENERIC EFFEXOR [Concomitant]
     Indication: DEPRESSION

REACTIONS (3)
  - VISION BLURRED [None]
  - WEIGHT INCREASED [None]
  - MACULOPATHY [None]
